FAERS Safety Report 8104917-6 (Version None)
Quarter: 2012Q1

REPORT INFORMATION
  Report Type: 
  Country: None (occurrence: None)
  Receive Date: 20120201
  Receipt Date: 20120126
  Transmission Date: 20120608
  Serious: Yes (Death)
  Sender: FDA-Public Use
  Company Number: US-GLAXOSMITHKLINE-A0963333A

PATIENT
  Sex: Female

DRUGS (17)
  1. LACTULOSE [Concomitant]
  2. TIKOSYN [Concomitant]
  3. PROMETHAZINE [Concomitant]
  4. NYSTATIN [Concomitant]
  5. POTASSIUM [Concomitant]
  6. VITAMIN E [Concomitant]
  7. SENOKOT [Concomitant]
  8. NITROSTAT [Concomitant]
  9. MORPHINE SULFATE [Concomitant]
  10. ASCORBIC ACID [Concomitant]
  11. EFFEXOR [Concomitant]
  12. PROMACTA [Suspect]
     Indication: PRODUCT USED FOR UNKNOWN INDICATION
     Dosage: 50MG EVERY 4 DAYS
     Route: 048
  13. ARIMIDEX [Concomitant]
  14. FLEXERIL [Concomitant]
  15. OMEPRAZOLE [Concomitant]
  16. CARAFATE [Concomitant]
  17. ALLOPURINOL [Concomitant]

REACTIONS (1)
  - DEATH [None]
